FAERS Safety Report 9300528 (Version 1)
Quarter: 2013Q2

REPORT INFORMATION
  Report Type: Report from Study
  Country: US (occurrence: US)
  Receive Date: 20130521
  Receipt Date: 20130521
  Transmission Date: 20140414
  Serious: Yes (Death, Hospitalization)
  Sender: FDA-Public Use
  Company Number: US-ROCHE-1196779

PATIENT
  Sex: Male

DRUGS (1)
  1. CELLCEPT [Suspect]
     Indication: TRANSPLANT
     Route: 048

REACTIONS (4)
  - Endocarditis [Fatal]
  - Infection [Unknown]
  - Cerebrovascular accident [Unknown]
  - Drug dose omission [Unknown]
